FAERS Safety Report 25517710 (Version 2)
Quarter: 2025Q3

REPORT INFORMATION
  Report Type: Spontaneous
  Country: US (occurrence: US)
  Receive Date: 20250704
  Receipt Date: 20250810
  Transmission Date: 20251020
  Serious: Yes (Life-Threatening, Hospitalization, Other)
  Sender: ALEXION PHARMACEUTICALS
  Company Number: US-AstraZeneca-CH-00900693A

PATIENT
  Sex: Female

DRUGS (1)
  1. SOLIRIS [Suspect]
     Active Substance: ECULIZUMAB
     Dates: start: 20250425, end: 20250605

REACTIONS (3)
  - Myasthenia gravis crisis [Recovering/Resolving]
  - Clostridium difficile infection [Recovering/Resolving]
  - Urinary tract infection [Recovering/Resolving]
